FAERS Safety Report 5786443-2 (Version None)
Quarter: 2008Q2

REPORT INFORMATION
  Report Type: 
  Country: None (occurrence: None)
  Receive Date: 20080619
  Receipt Date: 20080610
  Transmission Date: 20081010
  Serious: Yes (Hospitalization)
  Sender: FDA-Public Use
  Company Number: 6043569

PATIENT
  Age: 83 Year
  Sex: Female

DRUGS (5)
  1. BISOPROLOL FUMARATE [Suspect]
     Indication: DRUG USE FOR UNKNOWN INDICATION
     Dosage: 5 MG (5 MG, 1 D) ORAL
     Route: 048
     Dates: end: 20080503
  2. LERCANIDIPINE [Suspect]
     Indication: DRUG USE FOR UNKNOWN INDICATION
     Dosage: 20 MG (20 MG, 1 D) ORAL
     Route: 048
     Dates: end: 20080503
  3. BIPRETERAX (INDAPAMIDE, PERINDOPRIL ERBUMINE) [Suspect]
     Indication: DRUG USE FOR UNKNOWN INDICATION
     Dosage: 1 DOSAGE FORMS (1 DOSAGE FORMS, 1 D) ORAL
     Route: 048
     Dates: end: 20080530
  4. FUROSEMIDE [Suspect]
     Indication: DRUG USE FOR UNKNOWN INDICATION
     Dosage: 60 MG (60 MG, 1 D) ORAL
     Route: 048
  5. EUPRESSYL (CAPSULE) (URAPIDIL) [Suspect]
     Indication: DRUG USE FOR UNKNOWN INDICATION
     Dosage: 120 MG (60 MG, 2 IN 1 D) ORAL
     Route: 048

REACTIONS (3)
  - HYPOTENSION [None]
  - RENAL FAILURE [None]
  - TOXIC SKIN ERUPTION [None]
